FAERS Safety Report 14504685 (Version 2)
Quarter: 2018Q1

REPORT INFORMATION
  Report Type: Spontaneous
  Country: US (occurrence: US)
  Receive Date: 20180208
  Receipt Date: 20180305
  Transmission Date: 20180509
  Serious: No
  Sender: FDA-Public Use
  Company Number: US-PFIZER INC-2018052625

PATIENT
  Age: 47 Year
  Sex: Female
  Weight: 88.45 kg

DRUGS (3)
  1. GABAPENTIN. [Suspect]
     Active Substance: GABAPENTIN
     Dosage: 1200 MG, DAILY
  2. GABAPENTIN. [Suspect]
     Active Substance: GABAPENTIN
     Dosage: 300MG CAPSULES 2 CAPSULES EVERY 8 HOURS
     Dates: start: 20180130
  3. GABAPENTIN. [Suspect]
     Active Substance: GABAPENTIN
     Indication: NEURALGIA
     Dosage: 4000 MG, UNK

REACTIONS (1)
  - Drug ineffective for unapproved indication [Unknown]
